FAERS Safety Report 23853893 (Version 1)
Quarter: 2024Q2

REPORT INFORMATION
  Report Type: Spontaneous
  Country: US (occurrence: None)
  Receive Date: 20240514
  Receipt Date: 20240514
  Transmission Date: 20240716
  Serious: Yes (Hospitalization)
  Sender: FDA-Public Use
  Company Number: None

PATIENT
  Age: 54 Year
  Sex: Female
  Weight: 53.1 kg

DRUGS (2)
  1. OZEMPIC [Suspect]
     Active Substance: SEMAGLUTIDE
     Indication: Diabetes mellitus
     Dosage: OTHER FREQUENCY : WEEKLY;?
     Route: 058
     Dates: start: 20240222, end: 20240507
  2. OZEMPIC [Suspect]
     Active Substance: SEMAGLUTIDE
     Indication: Drug intolerance

REACTIONS (2)
  - Intussusception [None]
  - Gastrointestinal stoma complication [None]

NARRATIVE: CASE EVENT DATE: 20240507
